FAERS Safety Report 6582159-3 (Version None)
Quarter: 2010Q1

REPORT INFORMATION
  Report Type: 
  Country: None (occurrence: None)
  Receive Date: 20100216
  Receipt Date: 20100209
  Transmission Date: 20100710
  Serious: Yes (Hospitalization)
  Sender: FDA-Public Use
  Company Number: FR-WYE-G05515810

PATIENT
  Sex: Female

DRUGS (1)
  1. ADVIL [Suspect]
     Indication: COUGH
     Dosage: ONE SINGLE TABLET OF 400 MG
     Route: 048
     Dates: start: 20091201, end: 20091201

REACTIONS (5)
  - BLINDNESS TRANSIENT [None]
  - FEELING OF BODY TEMPERATURE CHANGE [None]
  - MALAISE [None]
  - MOBILITY DECREASED [None]
  - VOMITING [None]
